FAERS Safety Report 5849356-3 (Version None)
Quarter: 2008Q3

REPORT INFORMATION
  Report Type: 
  Country: None (occurrence: None)
  Receive Date: 20080819
  Receipt Date: 20080811
  Transmission Date: 20090109
  Serious: Yes (Hospitalization, Other)
  Sender: FDA-Public Use
  Company Number: US-BAYER-200829679NA

PATIENT
  Age: 60 Year
  Sex: Female
  Weight: 48 kg

DRUGS (12)
  1. SORAFENIB [Suspect]
     Indication: BILE DUCT CANCER
     Dosage: TOTAL DAILY DOSE: 800 MG  UNIT DOSE: 200 MG
     Route: 048
     Dates: start: 20080718, end: 20080725
  2. VORINOSTAT [Suspect]
     Indication: BILE DUCT CANCER
     Dosage: TOTAL DAILY DOSE: 300 MG
     Route: 048
     Dates: start: 20080718, end: 20080725
  3. MS CONTIN [Concomitant]
     Dosage: TOTAL DAILY DOSE: 15 MG
     Route: 048
  4. DILAUDID [Concomitant]
     Dosage: TOTAL DAILY DOSE: 2 MG
     Route: 048
  5. DILAUDID [Concomitant]
     Dates: start: 20080802
  6. ZOVIRAX [Concomitant]
     Dosage: TOTAL DAILY DOSE: 400 MG
     Route: 048
  7. LORAZEPAM [Concomitant]
     Route: 048
  8. ATENOLOL [Concomitant]
     Dosage: TOTAL DAILY DOSE: 75 MG
     Route: 048
  9. ADVIL [Concomitant]
     Route: 048
  10. TYLENOL [Concomitant]
     Route: 048
  11. AUGMENTIN '125' [Concomitant]
     Dosage: TOTAL DAILY DOSE: 400 MG
     Route: 048
  12. CIPROFLOXACIN HCL [Concomitant]
     Dosage: TOTAL DAILY DOSE: 500 MG
     Route: 048

REACTIONS (4)
  - ANAEMIA [None]
  - CHOLANGITIS [None]
  - ELECTROCARDIOGRAM QT PROLONGED [None]
  - PLEURAL EFFUSION [None]
